FAERS Safety Report 14603275 (Version 2)
Quarter: 2018Q1

REPORT INFORMATION
  Report Type: Spontaneous
  Country: CA (occurrence: CA)
  Receive Date: 20180306
  Receipt Date: 20180312
  Transmission Date: 20180509
  Serious: Yes (Other)
  Sender: FDA-Public Use
  Company Number: CA-MYLANLABS-2018M1014442

PATIENT
  Age: 49 Year
  Sex: Male
  Weight: 69 kg

DRUGS (2)
  1. METOPROLOL. [Concomitant]
     Active Substance: METOPROLOL
     Indication: ATRIAL FLUTTER
     Dosage: 25 MG, UNK
  2. PROPAFENONE. [Suspect]
     Active Substance: PROPAFENONE
     Indication: ATRIAL FIBRILLATION
     Dosage: 450 MG, ONCE
     Route: 048

REACTIONS (3)
  - Cardioversion [Unknown]
  - Treatment failure [Unknown]
  - Atrial flutter [Unknown]

NARRATIVE: CASE EVENT DATE: 20160713
